FAERS Safety Report 11657143 (Version 2)
Quarter: 2015Q4

REPORT INFORMATION
  Report Type: Report from Study
  Country: BR (occurrence: BR)
  Receive Date: 20151023
  Receipt Date: 20151028
  Transmission Date: 20160304
  Serious: Yes (Hospitalization)
  Sender: FDA-Public Use
  Company Number: BR-ABBVIE-15K-020-1484457-00

PATIENT
  Age: 69 Year
  Sex: Female
  Weight: 65 kg

DRUGS (3)
  1. SYNTHROID [Concomitant]
     Active Substance: LEVOTHYROXINE SODIUM
     Indication: THYROID DISORDER
     Route: 048
     Dates: start: 2010
  2. RIVOTRIL [Concomitant]
     Active Substance: CLONAZEPAM
     Indication: TRIGEMINAL NERVE DISORDER
     Route: 048
     Dates: start: 1995
  3. HUMIRA [Suspect]
     Active Substance: ADALIMUMAB
     Indication: RHEUMATOID ARTHRITIS
     Route: 058
     Dates: start: 20140407

REACTIONS (16)
  - Urinary tract infection [Recovered/Resolved]
  - Loss of consciousness [Unknown]
  - Groin pain [Unknown]
  - Abdominal pain [Unknown]
  - Haemoglobin decreased [Recovered/Resolved]
  - Pyelonephritis [Recovered/Resolved]
  - Pain in extremity [Unknown]
  - Blood creatinine abnormal [Not Recovered/Not Resolved]
  - Abasia [Unknown]
  - Blood pressure fluctuation [Unknown]
  - Nephrolithiasis [Recovered/Resolved]
  - Loss of consciousness [Recovered/Resolved]
  - Fall [Unknown]
  - Urinary tract infection [Recovering/Resolving]
  - C-reactive protein increased [Not Recovered/Not Resolved]
  - White blood cell count increased [Not Recovered/Not Resolved]

NARRATIVE: CASE EVENT DATE: 201510
